FAERS Safety Report 20481585 (Version 1)
Quarter: 2022Q1

REPORT INFORMATION
  Report Type: Spontaneous
  Country: JP (occurrence: JP)
  Receive Date: 20220216
  Receipt Date: 20220216
  Transmission Date: 20220423
  Serious: Yes (Other)
  Sender: FDA-Public Use
  Company Number: JP-JNJFOC-20220227735

PATIENT
  Age: 69 Year
  Sex: Male

DRUGS (1)
  1. TOPIRAMATE [Suspect]
     Active Substance: TOPIRAMATE
     Indication: Product used for unknown indication
     Route: 048
     Dates: end: 2013

REACTIONS (4)
  - Erectile dysfunction [Unknown]
  - Peyronie^s disease [Unknown]
  - Tinnitus [Unknown]
  - Movement disorder [Unknown]

NARRATIVE: CASE EVENT DATE: 20130424
